FAERS Safety Report 11274599 (Version 6)
Quarter: 2016Q2

REPORT INFORMATION
  Report Type: Report from Study
  Country: DE (occurrence: DE)
  Receive Date: 20150715
  Receipt Date: 20160613
  Transmission Date: 20160815
  Serious: Yes (Hospitalization, Other)
  Sender: FDA-Public Use
  Company Number: DE-GILEAD-2015-0162827

PATIENT
  Age: 56 Year
  Sex: Female
  Weight: 60 kg

DRUGS (10)
  1. PANTOPRAZOL [Concomitant]
     Active Substance: PANTOPRAZOLE SODIUM
     Dosage: 40 MG, UNK
     Route: 065
  2. VALDOXAN [Concomitant]
     Active Substance: AGOMELATINE
     Dosage: 25 MG, UNK
     Route: 065
  3. SPIRONOLACTON [Concomitant]
     Active Substance: SPIRONOLACTONE
     Dosage: 25 MG, UNK
     Route: 065
  4. AMITRIPTYLIN [Concomitant]
     Active Substance: AMITRIPTYLINE
     Dosage: 100 MG, UNK
     Route: 065
  5. LEDIPASVIR/SOFOSBUVIR [Suspect]
     Active Substance: LEDIPASVIR\SOFOSBUVIR
     Indication: CHRONIC HEPATITIS C
     Dosage: 1 DF, QD
     Route: 048
     Dates: start: 20150621, end: 20150912
  6. COPEGUS [Suspect]
     Active Substance: RIBAVIRIN
     Dosage: 1000 MG, QD
     Route: 048
     Dates: start: 20150621, end: 20150912
  7. METOPROLOL. [Concomitant]
     Active Substance: METOPROLOL
     Dosage: 95 MG, UNK
     Route: 065
  8. AMLODIPIN                          /00972401/ [Concomitant]
     Active Substance: AMLODIPINE BESYLATE
     Dosage: 5 MG, UNK
     Route: 065
  9. COPEGUS [Suspect]
     Active Substance: RIBAVIRIN
     Indication: CHRONIC HEPATITIS C
     Dosage: 600 MG, QD
     Route: 048
     Dates: start: 20150621, end: 20150912
  10. RAMIPRIL. [Concomitant]
     Active Substance: RAMIPRIL
     Dosage: 5 MG, UNK
     Route: 065

REACTIONS (7)
  - Anaemia [Not Recovered/Not Resolved]
  - Tachycardia [Recovered/Resolved]
  - Dyspnoea [Recovered/Resolved]
  - Haemoglobin decreased [Unknown]
  - Haematocrit decreased [Unknown]
  - Fatigue [Recovered/Resolved]
  - Suicide attempt [Recovering/Resolving]

NARRATIVE: CASE EVENT DATE: 20150707
